FAERS Safety Report 8536400-8 (Version None)
Quarter: 2012Q3

REPORT INFORMATION
  Report Type: 
  Country: None (occurrence: None)
  Receive Date: 20120712
  Receipt Date: 20120710
  Transmission Date: 20120928
  Serious: Yes (Death)
  Sender: FDA-Public Use
  Company Number: 2012032822

PATIENT
  Age: 70 Year
  Sex: Female

DRUGS (3)
  1. LEVOTHYROXINE SODIUM [Concomitant]
  2. ACTRAPID (INSULIN HUMAN) [Concomitant]
  3. PRIVIGEN [Suspect]
     Indication: IMMUNODEFICIENCY
     Dosage: 10 G QD INTRAVENOUS (NOT OTHERWISE SPECIFIED)
     Route: 042
     Dates: start: 20120628, end: 20120628

REACTIONS (1)
  - DEATH [None]
